FAERS Safety Report 5024366-7 (Version None)
Quarter: 2006Q2

REPORT INFORMATION
  Report Type: 
  Country: None (occurrence: None)
  Receive Date: 20060609
  Receipt Date: 20060609
  Transmission Date: 20061013
  Serious: Yes (Hospitalization, Disabling)
  Sender: FDA-Public Use
  Company Number: None

PATIENT
  Age: 57 Year
  Sex: Male
  Weight: 84 kg

DRUGS (2)
  1. DIAZEPAM [Suspect]
     Indication: SEDATIVE THERAPY
     Dosage: 5 MG 4 TIMES IV
     Route: 042
     Dates: start: 20060505, end: 20060505
  2. MORPHINE [Suspect]
     Indication: ANALGESIC THERAPY
     Dosage: 2 MG 2 TIMES IV
     Route: 042
     Dates: start: 20060505, end: 20060505

REACTIONS (1)
  - SOMNOLENCE [None]
